FAERS Safety Report 4886801-4 (Version None)
Quarter: 2006Q1

REPORT INFORMATION
  Report Type: 
  Country: None (occurrence: None)
  Receive Date: 20060119
  Receipt Date: 20060119
  Transmission Date: 20060701
  Serious: Yes (Life-Threatening, Hospitalization, Disabling)
  Sender: FDA-Public Use
  Company Number: None

PATIENT
  Age: 73 Year
  Sex: Male
  Weight: 72.5755 kg

DRUGS (1)
  1. NIASPAN [Suspect]
     Indication: BLOOD CHOLESTEROL ABNORMAL
     Dosage: ONE TABLET  NIGHTLY  PO  (ONCE)
     Route: 048
     Dates: start: 20060113, end: 20060113

REACTIONS (5)
  - BLOOD PRESSURE DECREASED [None]
  - FLUSHING [None]
  - LOSS OF CONSCIOUSNESS [None]
  - THROMBOSIS [None]
  - URINARY BLADDER HAEMORRHAGE [None]
